FAERS Safety Report 24769085 (Version 1)
Quarter: 2024Q4

REPORT INFORMATION
  Report Type: Spontaneous
  Country: ES (occurrence: ES)
  Receive Date: 20241224
  Receipt Date: 20241224
  Transmission Date: 20250114
  Serious: Yes (Hospitalization)
  Sender: JOHNSON AND JOHNSON
  Company Number: ES-JNJFOC-20241251615

PATIENT
  Age: 48 Year
  Sex: Male

DRUGS (2)
  1. INVOKANA [Interacting]
     Active Substance: CANAGLIFLOZIN
     Indication: Diabetes mellitus
     Route: 048
     Dates: start: 20240305
  2. LITHIUM CARBONATE [Interacting]
     Active Substance: LITHIUM CARBONATE
     Indication: Mental disorder
     Route: 065
     Dates: start: 20241127, end: 20241213

REACTIONS (2)
  - Hospitalisation [Unknown]
  - Drug interaction [Unknown]

NARRATIVE: CASE EVENT DATE: 20241127
